FAERS Safety Report 16585555 (Version 2)
Quarter: 2019Q4

REPORT INFORMATION
  Report Type: Spontaneous
  Country: US (occurrence: US)
  Receive Date: 20190717
  Receipt Date: 20191203
  Transmission Date: 20200122
  Serious: No
  Sender: FDA-Public Use
  Company Number: US-ACTELION-A-NJ2019-193066

PATIENT
  Sex: Female

DRUGS (14)
  1. MUPIROCIN. [Concomitant]
     Active Substance: MUPIROCIN
  2. HYDROCODONE BITARTRATE AND ACETAMINOPHEN [Concomitant]
     Active Substance: ACETAMINOPHEN\HYDROCODONE BITARTRATE
  3. FUROSEMIDE. [Concomitant]
     Active Substance: FUROSEMIDE
  4. PANTOPRAZOLE SODIUM. [Concomitant]
     Active Substance: PANTOPRAZOLE SODIUM
  5. CARVEDILOL. [Concomitant]
     Active Substance: CARVEDILOL
  6. OPSUMIT [Suspect]
     Active Substance: MACITENTAN
     Indication: PULMONARY ARTERIAL HYPERTENSION
     Dosage: 10 MG
     Route: 048
  7. AMITIZA [Concomitant]
     Active Substance: LUBIPROSTONE
  8. PRAVASTATIN SODIUM. [Concomitant]
     Active Substance: PRAVASTATIN SODIUM
  9. SILDENAFIL. [Concomitant]
     Active Substance: SILDENAFIL
     Indication: PULMONARY ARTERIAL HYPERTENSION
  10. DIGOXIN. [Concomitant]
     Active Substance: DIGOXIN
  11. MAGNESIUM [Concomitant]
     Active Substance: MAGNESIUM
  12. DULOXETINE HCL [Concomitant]
     Active Substance: DULOXETINE HYDROCHLORIDE
  13. INCRUSE ELLIPTA [Concomitant]
     Active Substance: UMECLIDINIUM BROMIDE
  14. POTASSIUM [Concomitant]
     Active Substance: POTASSIUM

REACTIONS (2)
  - Gastrointestinal disorder [Unknown]
  - Extra dose administered [Unknown]
